FAERS Safety Report 10068025 (Version 4)
Quarter: 2014Q2

REPORT INFORMATION
  Report Type: Spontaneous
  Country: CO (occurrence: CO)
  Receive Date: 20140409
  Receipt Date: 20140512
  Transmission Date: 20141212
  Serious: Yes (Hospitalization, Other)
  Sender: FDA-Public Use
  Company Number: CO-TEVA-458846USA

PATIENT
  Age: 67 Year
  Sex: Male
  Weight: 76.6 kg

DRUGS (9)
  1. RIBOMUSTINE [Suspect]
     Indication: MANTLE CELL LYMPHOMA
     Dosage: CYCLIC
     Route: 065
     Dates: start: 20131001, end: 20131215
  2. RIBOMUSTINE [Suspect]
     Dosage: CYCLIC, REGIMEN #2
     Dates: start: 20140212, end: 20140214
  3. RIBOMUSTINE [Suspect]
     Dosage: CYCLIC, REGIMEN #3
     Dates: start: 20140214
  4. RITUXIMAB [Suspect]
     Indication: MANTLE CELL LYMPHOMA
     Route: 065
     Dates: start: 20131213
  5. RITUXIMAB [Suspect]
     Dosage: REGIMEN #2
     Dates: start: 20140212, end: 20140214
  6. RITUXIMAB [Suspect]
     Dosage: REGIMEN #3
     Dates: start: 20140214
  7. ACICLOVIR [Suspect]
     Dosage: REGIMEN #1
  8. GLIBENCLAMIDE [Concomitant]
     Route: 048
     Dates: start: 2007
  9. RIVOTRIL [Concomitant]
     Route: 048
     Dates: start: 2007

REACTIONS (8)
  - Pneumonia [Recovered/Resolved]
  - Neutropenia [Recovered/Resolved]
  - Staphylococcal bacteraemia [Not Recovered/Not Resolved]
  - Septic embolus [Unknown]
  - Pleural effusion [Unknown]
  - Infection [Recovering/Resolving]
  - Neutropenia [Recovered/Resolved]
  - Thrombocytopenia [Recovered/Resolved]
